FAERS Safety Report 6138160-7 (Version None)
Quarter: 2009Q1

REPORT INFORMATION
  Report Type: 
  Country: None (occurrence: None)
  Receive Date: 20090331
  Receipt Date: 20090130
  Transmission Date: 20090719
  Serious: Yes (Death)
  Sender: FDA-Public Use
  Company Number: US-TYCO HEALTHCARE/MALLINCKRODT-T200900513

PATIENT
  Age: 51 Year
  Sex: Female

DRUGS (7)
  1. TRAMADOL HCL [Suspect]
     Route: 048
  2. PAMELOR [Suspect]
     Route: 048
  3. METFORMIN HCL [Suspect]
     Route: 048
  4. VENLAFAXINE [Suspect]
     Route: 048
  5. DOXEPIN HCL [Suspect]
     Route: 048
  6. ZOLPIDEM [Suspect]
     Route: 048
  7. ZIPRASIDONE HCL [Suspect]
     Route: 048

REACTIONS (1)
  - COMPLETED SUICIDE [None]
